FAERS Safety Report 25284555 (Version 1)
Quarter: 2025Q2

REPORT INFORMATION
  Report Type: Spontaneous
  Country: DK (occurrence: DK)
  Receive Date: 20250508
  Receipt Date: 20250508
  Transmission Date: 20250716
  Serious: Yes (Other)
  Sender: MYLAN
  Company Number: DK-Accord-481435

PATIENT
  Sex: Male

DRUGS (1)
  1. CABAZITAXEL [Suspect]
     Active Substance: CABAZITAXEL
     Indication: Hormone-refractory prostate cancer

REACTIONS (4)
  - Hydroureter [Unknown]
  - Hydronephrosis [Unknown]
  - Ureteritis [Unknown]
  - Haematuria [Unknown]
